FAERS Safety Report 19480394 (Version 1)
Quarter: 2021Q2

REPORT INFORMATION
  Report Type: Spontaneous
  Country: US (occurrence: US)
  Receive Date: 20210630
  Receipt Date: 20210630
  Transmission Date: 20210717
  Serious: No
  Sender: FDA-Public Use
  Company Number: US-FOUNDATIONCONSUMERHC-2021-US-004536

PATIENT
  Age: 34 Year
  Sex: Female
  Weight: 49.44 kg

DRUGS (6)
  1. VITAMIN C [Concomitant]
     Active Substance: ASCORBIC ACID
  2. ASPIRIN. [Concomitant]
     Active Substance: ASPIRIN
  3. ZINC. [Concomitant]
     Active Substance: ZINC
  4. PLAN B ONE?STEP [Suspect]
     Active Substance: LEVONORGESTREL
     Indication: POST COITAL CONTRACEPTION
     Dosage: 1.5MG X 2 DOSES
     Route: 048
     Dates: start: 2019, end: 20210228
  5. TUMERIC [Concomitant]
     Active Substance: HERBALS\TURMERIC
  6. VITAMIN D [Concomitant]
     Active Substance: VITAMIN D NOS

REACTIONS (6)
  - Nausea [Recovered/Resolved]
  - Chills [Not Recovered/Not Resolved]
  - Dysmenorrhoea [Recovered/Resolved]
  - Feeling hot [Not Recovered/Not Resolved]
  - Fatigue [Not Recovered/Not Resolved]
  - Breast tenderness [Recovered/Resolved]

NARRATIVE: CASE EVENT DATE: 2019
